FAERS Safety Report 12697850 (Version 1)
Quarter: 2016Q3

REPORT INFORMATION
  Report Type: Spontaneous
  Country: US (occurrence: US)
  Receive Date: 20160830
  Receipt Date: 20160830
  Transmission Date: 20161109
  Serious: Yes (Hospitalization, Other)
  Sender: FDA-Public Use
  Company Number: US-ASTELLAS-2016US032912

PATIENT
  Age: 72 Year
  Sex: Male

DRUGS (1)
  1. XTANDI [Suspect]
     Active Substance: ENZALUTAMIDE
     Indication: PROSTATE CANCER
     Route: 048
     Dates: start: 20160629, end: 20160822

REACTIONS (5)
  - Myalgia [Unknown]
  - Metastases to spine [Unknown]
  - Drug intolerance [Unknown]
  - Confusional state [Unknown]
  - Spinal fracture [Unknown]

NARRATIVE: CASE EVENT DATE: 20160801
